FAERS Safety Report 20136918 (Version 1)
Quarter: 2021Q4

REPORT INFORMATION
  Report Type: Spontaneous
  Country: US (occurrence: None)
  Receive Date: 20211201
  Receipt Date: 20211201
  Transmission Date: 20220303
  Serious: Yes (Other)
  Sender: FDA-Public Use
  Company Number: None

PATIENT
  Age: 37 Year
  Weight: 117 kg

DRUGS (9)
  1. HUMIRA [Suspect]
     Active Substance: ADALIMUMAB
     Indication: Hidradenitis
     Dosage: OTHER FREQUENCY : INJECTION 1 A WEEK;?
     Route: 058
  2. HUMIRA 40 MG [Concomitant]
  3. LAMISIL [Concomitant]
     Active Substance: TERBINAFINE HYDROCHLORIDE
  4. CYLDAMYCIN [Concomitant]
  5. DEPO PRO VERA BIRTH CONTROL INJECTION [Concomitant]
  6. CENTRUM MULTIVITAMIN (WOMENS) [Concomitant]
  7. HERBALS\TURMERIC [Concomitant]
     Active Substance: HERBALS\TURMERIC
  8. FOLIC ACID [Concomitant]
     Active Substance: FOLIC ACID
  9. TYLENOL [Concomitant]
     Active Substance: ACETAMINOPHEN

REACTIONS (7)
  - Nasal congestion [None]
  - Sinusitis [None]
  - Onychomycosis [None]
  - Pain [None]
  - Root canal infection [None]
  - Psoriasis [None]
  - Tooth infection [None]
